FAERS Safety Report 14383960 (Version 4)
Quarter: 2019Q1

REPORT INFORMATION
  Report Type: Spontaneous
  Country: US (occurrence: US)
  Receive Date: 20180115
  Receipt Date: 20190215
  Transmission Date: 20190417
  Serious: Yes (Hospitalization, Disabling, Other)
  Sender: FDA-Public Use
  Company Number: US-ASTRAZENECA-2018SE03996

PATIENT
  Age: 641 Month
  Sex: Male
  Weight: 116.6 kg

DRUGS (56)
  1. HUMULIN NOS [Concomitant]
     Active Substance: INSULIN HUMAN
     Indication: TYPE 2 DIABETES MELLITUS
     Route: 065
     Dates: start: 19990420
  2. LIPITOR [Concomitant]
     Active Substance: ATORVASTATIN CALCIUM
     Route: 065
     Dates: start: 20000430
  3. ACCUPRIL [Concomitant]
     Active Substance: QUINAPRIL HYDROCHLORIDE
     Route: 065
     Dates: start: 19990702
  4. CEFADROXIL. [Concomitant]
     Active Substance: CEFADROXIL
     Route: 065
     Dates: start: 20000430
  5. GLYBURIDE. [Concomitant]
     Active Substance: GLYBURIDE
     Route: 065
     Dates: start: 20000430
  6. TALACEN [Concomitant]
     Active Substance: ACETAMINOPHEN\PENTAZOCINE HYDROCHLORIDE
     Route: 065
     Dates: start: 20000430
  7. PROMETHAZINE [Concomitant]
     Active Substance: PROMETHAZINE\PROMETHAZINE HYDROCHLORIDE
     Indication: HYPERSENSITIVITY
     Route: 065
     Dates: start: 20000430
  8. CARVEDILOL. [Concomitant]
     Active Substance: CARVEDILOL
     Indication: HYPERTENSION
     Route: 065
     Dates: start: 20000430
  9. OMEPRAZOLE. [Suspect]
     Active Substance: OMEPRAZOLE
     Indication: GASTROOESOPHAGEAL REFLUX DISEASE
     Route: 048
     Dates: start: 2010, end: 2012
  10. REZULIN [Concomitant]
     Active Substance: TROGLITAZONE
     Route: 065
     Dates: start: 19990316
  11. DULOXETINE. [Concomitant]
     Active Substance: DULOXETINE
     Indication: NEUROPATHY PERIPHERAL
     Route: 065
  12. CARVEDILOL. [Concomitant]
     Active Substance: CARVEDILOL
     Indication: BLOOD PRESSURE MEASUREMENT
     Route: 065
  13. CLARITIN-D NOS [Concomitant]
     Active Substance: LORATADINE\PSEUDOEPHEDRINE SULFATE
     Indication: HYPERSENSITIVITY
     Route: 065
     Dates: start: 20000430
  14. METHOCARBAMOL. [Concomitant]
     Active Substance: METHOCARBAMOL
     Route: 065
     Dates: start: 20000430
  15. BENAZEPRIL [Concomitant]
     Active Substance: BENAZEPRIL HYDROCHLORIDE
     Route: 065
     Dates: start: 20000430
  16. GLIMEPIRIDE. [Concomitant]
     Active Substance: GLIMEPIRIDE
     Route: 065
     Dates: start: 20000430
  17. BETAMETHASONE. [Concomitant]
     Active Substance: BETAMETHASONE
     Route: 065
     Dates: start: 20000430
  18. ALLOPURINOL. [Concomitant]
     Active Substance: ALLOPURINOL
     Indication: NEPHROLITHIASIS
     Route: 065
     Dates: start: 20000430
  19. VICODIN [Concomitant]
     Active Substance: ACETAMINOPHEN\HYDROCODONE BITARTRATE
     Indication: PAIN
     Route: 065
     Dates: start: 20000430
  20. FLOVENT HFA [Concomitant]
     Active Substance: FLUTICASONE PROPIONATE
     Route: 065
     Dates: start: 20000430
  21. HYDROXYZINE [Concomitant]
     Active Substance: HYDROXYZINE HYDROCHLORIDE
     Indication: HYPERSENSITIVITY
     Route: 065
     Dates: start: 20000430
  22. ELIQUIS [Concomitant]
     Active Substance: APIXABAN
     Indication: BLOOD DISORDER
     Route: 065
     Dates: start: 20000430
  23. DULOXETINE. [Concomitant]
     Active Substance: DULOXETINE
     Indication: NEUROPATHY PERIPHERAL
     Route: 065
     Dates: start: 20000430
  24. NEXIUM [Suspect]
     Active Substance: ESOMEPRAZOLE MAGNESIUM
     Indication: GASTROOESOPHAGEAL REFLUX DISEASE
     Route: 048
     Dates: start: 201005, end: 201009
  25. PREVACID [Suspect]
     Active Substance: LANSOPRAZOLE
     Indication: GASTROOESOPHAGEAL REFLUX DISEASE
     Route: 065
     Dates: start: 1999, end: 2007
  26. PANTOPRAZOLE [Suspect]
     Active Substance: PANTOPRAZOLE
     Indication: GASTROOESOPHAGEAL REFLUX DISEASE
     Route: 048
  27. GLIMEPIRIDE. [Concomitant]
     Active Substance: GLIMEPIRIDE
     Route: 065
  28. NASONEX [Concomitant]
     Active Substance: MOMETASONE FUROATE
     Route: 065
     Dates: start: 20000430
  29. ACTOS [Concomitant]
     Active Substance: PIOGLITAZONE HYDROCHLORIDE
     Route: 065
     Dates: start: 20000430
  30. NAPROXEN. [Concomitant]
     Active Substance: NAPROXEN
     Indication: PAIN
     Route: 065
     Dates: start: 20000430
  31. FUROSEMIDE. [Concomitant]
     Active Substance: FUROSEMIDE
     Indication: SWELLING
     Route: 065
     Dates: start: 20000430
  32. GABAPENTIN. [Concomitant]
     Active Substance: GABAPENTIN
     Indication: PAIN
     Route: 065
     Dates: start: 20000430
  33. CETIRIZINE [Concomitant]
     Active Substance: CETIRIZINE HYDROCHLORIDE
     Route: 065
     Dates: start: 20000430
  34. COLESTYRAMINE [Concomitant]
     Active Substance: CHOLESTYRAMINE
     Route: 065
     Dates: start: 20000430
  35. CETIRIZINE [Concomitant]
     Active Substance: CETIRIZINE HYDROCHLORIDE
     Indication: HYPERSENSITIVITY
     Route: 065
     Dates: start: 20000430
  36. PREVACID [Suspect]
     Active Substance: LANSOPRAZOLE
     Indication: GASTROOESOPHAGEAL REFLUX DISEASE
     Route: 065
     Dates: start: 20000426
  37. LISINOPRIL. [Concomitant]
     Active Substance: LISINOPRIL
     Indication: BLOOD PRESSURE MEASUREMENT
     Route: 065
  38. VICTOZA [Concomitant]
     Active Substance: LIRAGLUTIDE
     Indication: DIABETES MELLITUS
     Route: 065
  39. TUMS [Concomitant]
     Active Substance: CALCIUM CARBONATE
     Route: 065
     Dates: start: 20000430
  40. LAMISIL [Concomitant]
     Active Substance: TERBINAFINE HYDROCHLORIDE
     Route: 065
     Dates: start: 20000430
  41. MONTELUKAST [Concomitant]
     Active Substance: MONTELUKAST SODIUM
     Indication: INFLAMMATION
     Route: 065
     Dates: start: 20000430
  42. PREVACID [Suspect]
     Active Substance: LANSOPRAZOLE
     Indication: GASTROOESOPHAGEAL REFLUX DISEASE
     Route: 065
     Dates: start: 1999, end: 2007
  43. PREVACID [Suspect]
     Active Substance: LANSOPRAZOLE
     Indication: GASTROOESOPHAGEAL REFLUX DISEASE
     Route: 065
     Dates: start: 20000426
  44. ZYRTEC [Concomitant]
     Active Substance: CETIRIZINE HYDROCHLORIDE
     Indication: HYPERSENSITIVITY
     Route: 065
     Dates: start: 20000430
  45. KLOR-CON [Concomitant]
     Active Substance: POTASSIUM CHLORIDE
     Indication: BLOOD POTASSIUM ABNORMAL
     Route: 065
     Dates: start: 20000430
  46. BENZONATATE. [Concomitant]
     Active Substance: BENZONATATE
     Route: 065
     Dates: start: 20000430
  47. NEXIUM [Suspect]
     Active Substance: ESOMEPRAZOLE MAGNESIUM
     Indication: GASTROOESOPHAGEAL REFLUX DISEASE
     Route: 048
     Dates: start: 1999, end: 2012
  48. PREVACID [Suspect]
     Active Substance: LANSOPRAZOLE
     Indication: GASTROOESOPHAGEAL REFLUX DISEASE
     Route: 048
     Dates: start: 1999, end: 2012
  49. GLYNASE [Concomitant]
     Active Substance: GLYBURIDE
     Route: 065
     Dates: start: 20000430
  50. ATORVASTATIN [Concomitant]
     Active Substance: ATORVASTATIN
     Indication: BLOOD CHOLESTEROL ABNORMAL
     Route: 065
     Dates: start: 20000430
  51. NEXIUM [Suspect]
     Active Substance: ESOMEPRAZOLE MAGNESIUM
     Indication: GASTROOESOPHAGEAL REFLUX DISEASE
     Route: 048
     Dates: start: 1999, end: 2012
  52. NEXIUM [Suspect]
     Active Substance: ESOMEPRAZOLE MAGNESIUM
     Indication: GASTROOESOPHAGEAL REFLUX DISEASE
     Route: 048
     Dates: start: 201005, end: 201009
  53. PREVACID [Suspect]
     Active Substance: LANSOPRAZOLE
     Indication: GASTROOESOPHAGEAL REFLUX DISEASE
     Route: 048
     Dates: start: 1999, end: 2012
  54. ACETAMINOPHEN. [Concomitant]
     Active Substance: ACETAMINOPHEN
     Indication: PAIN
     Route: 065
     Dates: start: 20000430
  55. LYRICA [Concomitant]
     Active Substance: PREGABALIN
     Route: 065
     Dates: start: 20000430
  56. TIZANIDINE. [Concomitant]
     Active Substance: TIZANIDINE
     Route: 065
     Dates: start: 20000430

REACTIONS (8)
  - Acute kidney injury [Unknown]
  - Nephrogenic anaemia [Unknown]
  - Renal injury [Unknown]
  - Diabetic end stage renal disease [Not Recovered/Not Resolved]
  - Hyperparathyroidism secondary [Unknown]
  - Renal failure [Unknown]
  - End stage renal disease [Not Recovered/Not Resolved]
  - Chronic kidney disease [Unknown]

NARRATIVE: CASE EVENT DATE: 201202
